FAERS Safety Report 8846671 (Version 1)
Quarter: 2012Q4

REPORT INFORMATION
  Report Type: 
  Country: CH (occurrence: CH)
  Receive Date: 20121017
  Receipt Date: 20121017
  Transmission Date: 20130627
  Serious: Yes (Life-Threatening, Hospitalization)
  Sender: FDA-Public Use
  Company Number: CH-NAPPMUNDI-DEU-2012-0009571

PATIENT
  Age: 82 Year
  Sex: Male
  Weight: 95 kg

DRUGS (15)
  1. PALLADONE [Suspect]
     Indication: ANALGESIC THERAPY
     Dosage: 1 mg, 6 times per day
     Route: 058
     Dates: start: 20120702, end: 20120703
  2. PALLADONE [Suspect]
     Dosage: 0.5 mg, tid
     Route: 058
     Dates: start: 20120702
  3. MORPHINE SULFATE [Suspect]
     Indication: ANALGESIC THERAPY
     Dosage: 10 mg, daily
     Route: 048
     Dates: start: 20120627, end: 20120702
  4. IOHEXOL [Suspect]
     Indication: SCAN WITH CONTRAST
     Dosage: 150 ml, single
     Route: 042
     Dates: start: 20120702, end: 20120702
  5. METFIN [Concomitant]
     Dosage: 1000 mg, bid
     Route: 048
  6. AMARYL [Concomitant]
     Dosage: 2 mg, daily
     Route: 048
  7. NOVORAPID [Concomitant]
     Dosage: 2 UNK, daily
     Route: 058
  8. SORTIS [Concomitant]
     Dosage: 10 mg, daily
     Route: 048
  9. ZYLORIC [Concomitant]
     Dosage: 100 mg, daily
     Route: 048
  10. TOREM                              /01036501/ [Concomitant]
     Dosage: 5 mg, daily
  11. RENITEN MITE [Concomitant]
     Dosage: 2.5 mg, daily
  12. CALCIPARINE [Concomitant]
     Dosage: 5000 UNK, bid
  13. LAXOBERON [Concomitant]
     Dosage: 1 mg, daily
     Dates: start: 20120629, end: 20120727
  14. VI-DE 3 [Concomitant]
     Dosage: 800 UNK, daily
     Route: 048
     Dates: start: 20120629
  15. DAFALGAN [Concomitant]
     Dosage: 1 g, tid
     Route: 048
     Dates: start: 20120628, end: 20120702

REACTIONS (3)
  - Coma [Recovered/Resolved]
  - Renal failure acute [Recovered/Resolved]
  - Dehydration [None]
